FAERS Safety Report 5585757-9 (Version None)
Quarter: 2007Q4

REPORT INFORMATION
  Report Type: 
  Country: None (occurrence: None)
  Receive Date: 20071204
  Receipt Date: 20070815
  Transmission Date: 20080405
  Serious: Yes (Other)
  Sender: FDA-Public Use
  Company Number: 07-077

PATIENT
  Age: 62 Year
  Sex: Female
  Weight: 68.0396 kg

DRUGS (5)
  1. IBUPROFEN TABLETS [Suspect]
     Indication: INTERVERTEBRAL DISC PROTRUSION
     Dosage: 800 MG PO TID
     Route: 048
  2. IBUPROFEN TABLETS [Suspect]
     Indication: OSTEOARTHRITIS
     Dosage: 800 MG PO TID
     Route: 048
  3. PRILOSEC [Concomitant]
  4. PANTHENOL [Concomitant]
  5. SYNTHROID [Concomitant]

REACTIONS (3)
  - DYSPHAGIA [None]
  - FLATULENCE [None]
  - OESOPHAGEAL PAIN [None]
